FAERS Safety Report 5518683-1 (Version None)
Quarter: 2007Q4

REPORT INFORMATION
  Report Type: 
  Country: None (occurrence: None)
  Receive Date: 20071113
  Receipt Date: 20071030
  Transmission Date: 20080405
  Serious: Yes (Death, Hospitalization, Other)
  Sender: FDA-Public Use
  Company Number: 2007-03660

PATIENT
  Age: 51 Year
  Sex: Female

DRUGS (1)
  1. VELCADE [Suspect]
     Indication: MANTLE CELL LYMPHOMA
     Dosage: 1.30 MG/M2
     Dates: start: 20070801, end: 20071001

REACTIONS (5)
  - DIARRHOEA [None]
  - PANCYTOPENIA [None]
  - PYREXIA [None]
  - SHOCK [None]
  - TACHYCARDIA [None]
